FAERS Safety Report 5863106-6 (Version None)
Quarter: 2008Q3

REPORT INFORMATION
  Report Type: 
  Country: None (occurrence: None)
  Receive Date: 20080828
  Receipt Date: 20080807
  Transmission Date: 20090109
  Serious: Yes (Life-Threatening, Hospitalization, Other)
  Sender: FDA-Public Use
  Company Number: GB-MERCK-0805GBR00016

PATIENT
  Age: 69 Year
  Sex: Male
  Weight: 80 kg

DRUGS (9)
  1. EZETIMIBE [Suspect]
     Route: 048
     Dates: start: 20031124, end: 20071201
  2. EZETIMIBE [Suspect]
     Route: 048
  3. ATORVASTATIN [Concomitant]
     Route: 048
  4. ANTIMICROBIAL (UNSPECIFIED) [Concomitant]
     Route: 065
  5. FUSIDATE SODIUM [Suspect]
     Indication: INFECTION
     Route: 065
     Dates: start: 20071101
  6. ASPIRIN [Concomitant]
     Route: 065
  7. ESOMEPRAZOLE [Concomitant]
     Route: 065
  8. FUSIDATE SODIUM [Concomitant]
     Route: 065
  9. SUMATRIPTAN SUCCINATE [Concomitant]
     Route: 065

REACTIONS (13)
  - ATRIAL FIBRILLATION [None]
  - DEVICE RELATED INFECTION [None]
  - DIARRHOEA [None]
  - DRUG INTERACTION [None]
  - HIP ARTHROPLASTY [None]
  - LIVER DISORDER [None]
  - MIGRAINE [None]
  - MULTI-ORGAN FAILURE [None]
  - MUSCULAR WEAKNESS [None]
  - OSTEOARTHRITIS [None]
  - PNEUMONIA [None]
  - RENAL FAILURE ACUTE [None]
  - RHABDOMYOLYSIS [None]
